APPROVED DRUG PRODUCT: ANDROID 10
Active Ingredient: METHYLTESTOSTERONE
Strength: 10MG
Dosage Form/Route: TABLET;ORAL
Application: A086450 | Product #001
Applicant: VALEANT PHARMACEUTICALS NORTH AMERICA LLC
Approved: Approved Prior to Jan 1, 1982 | RLD: No | RS: No | Type: DISCN